FAERS Safety Report 14798489 (Version 4)
Quarter: 2018Q2

REPORT INFORMATION
  Report Type: Spontaneous
  Country: US (occurrence: US)
  Receive Date: 20180424
  Receipt Date: 20180530
  Transmission Date: 20180711
  Serious: No
  Sender: FDA-Public Use
  Company Number: US-PFIZER INC-2018165626

PATIENT
  Age: 67 Year
  Sex: Female

DRUGS (2)
  1. METHOTREXATE SODIUM. [Suspect]
     Active Substance: METHOTREXATE SODIUM
     Indication: RHEUMATOID ARTHRITIS
     Dosage: 1 ML, WEEKLY
     Route: 058
     Dates: start: 201711
  2. METHOTREXATE SODIUM. [Suspect]
     Active Substance: METHOTREXATE SODIUM
     Indication: PSORIATIC ARTHROPATHY
     Dosage: 25 MG, WEEKLY
     Route: 058
     Dates: start: 201711

REACTIONS (4)
  - Drug effect incomplete [Unknown]
  - Synovitis [Not Recovered/Not Resolved]
  - Joint range of motion decreased [Unknown]
  - Musculoskeletal pain [Unknown]
